FAERS Safety Report 8116913-3 (Version None)
Quarter: 2012Q1

REPORT INFORMATION
  Report Type: 
  Country: None (occurrence: None)
  Receive Date: 20120206
  Receipt Date: 20120127
  Transmission Date: 20120608
  Serious: Yes (Hospitalization, Congenital Anomaly, Other)
  Sender: FDA-Public Use
  Company Number: CA-PFIZER INC-2012025749

PATIENT
  Sex: Male
  Weight: 1 kg

DRUGS (3)
  1. DAUNORUBICIN [Suspect]
     Indication: ACUTE LEUKAEMIA
     Route: 064
  2. THIOGUANINE [Suspect]
     Indication: ACUTE LEUKAEMIA
     Dosage: UNK
     Route: 064
  3. CYTARABINE [Suspect]
     Indication: ACUTE LEUKAEMIA
     Route: 064

REACTIONS (4)
  - CONGENITAL EYE DISORDER [None]
  - UPPER RESPIRATORY TRACT INFECTION [None]
  - MATERNAL EXPOSURE TIMING UNSPECIFIED [None]
  - LOW BIRTH WEIGHT BABY [None]
